FAERS Safety Report 20716947 (Version 1)
Quarter: 2022Q2

REPORT INFORMATION
  Report Type: Report from Study
  Country: ES (occurrence: ES)
  Receive Date: 20220416
  Receipt Date: 20220416
  Transmission Date: 20220721
  Serious: Yes (Life-Threatening)
  Sender: FDA-Public Use
  Company Number: ES-LUNDBECK-DKLU3046871

PATIENT
  Age: 36 Year
  Sex: Male
  Weight: 66.6 kg

DRUGS (3)
  1. EPTINEZUMAB [Suspect]
     Active Substance: EPTINEZUMAB
     Indication: Cluster headache
     Route: 041
     Dates: start: 20220411, end: 20220411
  2. MELATONIN [Concomitant]
     Active Substance: MELATONIN
     Indication: Insomnia
     Route: 048
     Dates: start: 202106
  3. Rilast forte (320 ug budesonida/9 ug formoterol fumarate dihydrate) [Concomitant]
     Indication: Asthma
     Dosage: UNIT: OTHER (INHALATION)
     Route: 055
     Dates: start: 1993

REACTIONS (1)
  - Anaphylactic reaction [Recovered/Resolved]

NARRATIVE: CASE EVENT DATE: 20220411
